FAERS Safety Report 8799535 (Version 1)
Quarter: 2012Q4

REPORT INFORMATION
  Report Type: 
  Country: US (occurrence: US)
  Receive Date: 20120919
  Receipt Date: 20120919
  Transmission Date: 20130627
  Serious: No
  Sender: FDA-Public Use
  Company Number: US-PFIZER INC-2012231312

PATIENT
  Age: 43 Year
  Sex: Female
  Weight: 79.37 kg

DRUGS (5)
  1. CHANTIX [Suspect]
     Indication: EX-TOBACCO USER
     Dosage: 0.5 mg, daily
     Dates: start: 2008
  2. CHANTIX [Suspect]
     Dosage: UNK
  3. ACIPHEX [Concomitant]
     Indication: GASTROOESOPHAGEAL REFLUX DISEASE
     Dosage: 20 mg, daily
  4. CYMBALTA [Concomitant]
     Indication: FIBROMYALGIA
     Dosage: 60 mg, 2x/day
  5. AMITRIPTYLINE [Concomitant]
     Indication: FIBROMYALGIA
     Dosage: 50 mg, 2x/day

REACTIONS (1)
  - Drug ineffective [Unknown]
